FAERS Safety Report 16302599 (Version 2)
Quarter: 2019Q2

REPORT INFORMATION
  Report Type: Spontaneous
  Country: KR (occurrence: KR)
  Receive Date: 20190513
  Receipt Date: 20190520
  Transmission Date: 20190711
  Serious: Yes (Hospitalization, Other)
  Sender: FDA-Public Use
  Company Number: KR-REGENERON PHARMACEUTICALS, INC.-2019-30713

PATIENT

DRUGS (3)
  1. EYLEA [Suspect]
     Active Substance: AFLIBERCEPT
     Indication: PRODUCT USED FOR UNKNOWN INDICATION
     Dosage: UNK
  2. EYLEA [Suspect]
     Active Substance: AFLIBERCEPT
     Dosage: LAST DOSE PRIOR THE EVENT OF ENDOPHTHALMITIS
     Route: 031
     Dates: start: 20190430, end: 20190430
  3. EYLEA [Suspect]
     Active Substance: AFLIBERCEPT
     Dosage: LAST DOSE PRIOR THE EVENT OF ENDOPHTHALMITIS
     Route: 031
     Dates: start: 20190430, end: 20190430

REACTIONS (3)
  - Endophthalmitis [Recovered/Resolved]
  - Blindness unilateral [Recovered/Resolved]
  - Cystoid macular oedema [Unknown]

NARRATIVE: CASE EVENT DATE: 201903
